FAERS Safety Report 10622593 (Version 1)
Quarter: 2014Q4

REPORT INFORMATION
  Report Type: Other
  Country: RU (occurrence: RU)
  Receive Date: 20141203
  Receipt Date: 20141203
  Transmission Date: 20150529
  Serious: Yes (Other)
  Sender: FDA-Public Use
  Company Number: RU-BRISTOL-MYERS SQUIBB COMPANY-21646021

PATIENT
  Sex: Male

DRUGS (6)
  1. RITUXIMAB [Suspect]
     Active Substance: RITUXIMAB
     Route: 015
  2. ETOPOSIDE. [Suspect]
     Active Substance: ETOPOSIDE
     Route: 015
  3. DOXORUBICIN [Suspect]
     Active Substance: DOXORUBICIN
     Route: 015
  4. PREDNISONE. [Suspect]
     Active Substance: PREDNISONE
     Route: 015
  5. CYCLOPHOSPHAMIDE. [Suspect]
     Active Substance: CYCLOPHOSPHAMIDE
     Route: 015
  6. VINCRISTINE [Suspect]
     Active Substance: VINCRISTINE
     Route: 015

REACTIONS (4)
  - Respiratory distress [Unknown]
  - Premature baby [Unknown]
  - Pneumonia [Unknown]
  - Foetal exposure during pregnancy [Unknown]
